FAERS Safety Report 4513203-2 (Version None)
Quarter: 2004Q4

REPORT INFORMATION
  Report Type: 
  Country: None (occurrence: None)
  Receive Date: 20041124
  Receipt Date: 20041116
  Transmission Date: 20050328
  Serious: Yes (Hospitalization)
  Sender: FDA-Public Use
  Company Number: FRWYE204616NOV04

PATIENT
  Age: 65 Year
  Sex: Female

DRUGS (8)
  1. BISOPROLOL FUMARATE AND HYDROCHLOROTHIAZIDE [Suspect]
     Indication: HYPERTENSION
     Route: 048
  2. TOPALGIC (TRAMADOL HYDROCHLORIDE) [Concomitant]
  3. VICTAN (ETHYL LORAZEPATE) [Concomitant]
  4. LASIX [Concomitant]
  5. MICROKALEORID (POTASSIUM CHLORIDE) [Concomitant]
  6. FOSAMAX (ALENDRONATE SOIDIUM) [Concomitant]
  7. CIRKAN (ASCORBIC ACID/HERBAL EXTRACTS NOS/ HESPERIDIN METHYL CHALCONE/ [Concomitant]
  8. ATHYMIL (MIANSERIN HYDROCHLORIDE) [Suspect]
     Dosage: 30 MG 1X PER 1 DAY
     Route: 048
     Dates: end: 20040823

REACTIONS (5)
  - AGRANULOCYTOSIS [None]
  - BODY TEMPERATURE INCREASED [None]
  - LEUKOPENIA [None]
  - POLYARTERITIS NODOSA [None]
  - THROMBOCYTOPENIA [None]
